FAERS Safety Report 11526846 (Version 1)
Quarter: 2015Q3

REPORT INFORMATION
  Report Type: Spontaneous
  Country: GB (occurrence: GB)
  Receive Date: 20150919
  Receipt Date: 20150919
  Transmission Date: 20151125
  Serious: Yes (Hospitalization)
  Sender: FDA-Public Use
  Company Number: GB-AUROBINDO-AUR-APL-2015-08309

PATIENT
  Age: 21 Year
  Sex: Female

DRUGS (1)
  1. METRONIDAZOLE 400MG [Suspect]
     Active Substance: METRONIDAZOLE
     Indication: GASTROINTESTINAL BACTERIAL INFECTION
     Dosage: 400 MG, TWO TIMES A DAY
     Route: 048

REACTIONS (14)
  - Dysphagia [Unknown]
  - Blood bilirubin increased [Unknown]
  - Toxicity to various agents [Unknown]
  - Malaise [Unknown]
  - Hepatic function abnormal [Unknown]
  - Activated partial thromboplastin time prolonged [Unknown]
  - Alanine aminotransferase increased [Unknown]
  - International normalised ratio increased [Unknown]
  - Cerebrovascular accident [Unknown]
  - Hemiparesis [Unknown]
  - Gamma-glutamyltransferase increased [Unknown]
  - Jaundice [Unknown]
  - Pneumonia aspiration [Unknown]
  - Blood alkaline phosphatase increased [Unknown]
